FAERS Safety Report 12256021 (Version 1)
Quarter: 2016Q2

REPORT INFORMATION
  Report Type: Spontaneous
  Country: US (occurrence: None)
  Receive Date: 20160411
  Receipt Date: 20160411
  Transmission Date: 20160815
  Serious: Yes (Disabling, Other)
  Sender: FDA-Public Use
  Company Number: None

PATIENT
  Age: 63 Year
  Sex: Female
  Weight: 72.12 kg

DRUGS (9)
  1. CELECOXIB. [Concomitant]
     Active Substance: CELECOXIB
  2. LISINOPRIL AND HYDROCHLOROTHIAZIDE [Concomitant]
     Active Substance: HYDROCHLOROTHIAZIDE\LISINOPRIL
  3. DAILY VITAMIN [Concomitant]
     Active Substance: VITAMINS
  4. METAFORIM [Concomitant]
  5. GLIMEPIRIDE. [Concomitant]
     Active Substance: GLIMEPIRIDE
  6. OMEGA [Concomitant]
     Active Substance: CONVALLARIA MAJALIS\CRATAEGUS LAEVIGATA LEAF\PROXYPHYLLINE
  7. LISINOPRIL HCTZ 20/25, 20 MG UNKNOWN [Suspect]
     Active Substance: HYDROCHLOROTHIAZIDE\LISINOPRIL
     Indication: HYPERTENSION
     Dosage: 1 TABLET(S) ONCE A DAY TAKEN BY MOUTH
     Route: 048
     Dates: start: 20150923, end: 20160408
  8. MULTIPLE VITAMIN [Concomitant]
     Active Substance: VITAMINS
  9. NEXIUM [Concomitant]
     Active Substance: ESOMEPRAZOLE MAGNESIUM

REACTIONS (2)
  - Retinal tear [None]
  - Retinal detachment [None]

NARRATIVE: CASE EVENT DATE: 20160227
